FAERS Safety Report 11680477 (Version 2)
Quarter: 2015Q4

REPORT INFORMATION
  Report Type: Spontaneous
  Country: US (occurrence: US)
  Receive Date: 20151027
  Receipt Date: 20151104
  Transmission Date: 20160304
  Serious: No
  Sender: FDA-Public Use
  Company Number: US-ELI_LILLY_AND_COMPANY-US201009005240

PATIENT
  Age: 77 Year
  Sex: Female

DRUGS (4)
  1. FORTEO [Suspect]
     Active Substance: TERIPARATIDE
     Dosage: 20 UG, DAILY (1/D)
     Route: 065
     Dates: start: 20101010
  2. FORTEO [Suspect]
     Active Substance: TERIPARATIDE
     Dosage: 20 UG, QD
     Dates: end: 201105
  3. FORTEO [Suspect]
     Active Substance: TERIPARATIDE
     Dosage: 20 UG, QD
     Route: 065
  4. FORTEO [Suspect]
     Active Substance: TERIPARATIDE
     Indication: OSTEOPOROSIS
     Dosage: 20 UG, DAILY (1/D)
     Route: 065
     Dates: start: 20100910, end: 20101009

REACTIONS (12)
  - Weight decreased [Unknown]
  - Blood glucose increased [Unknown]
  - Visual impairment [Unknown]
  - Headache [Not Recovered/Not Resolved]
  - Medication error [Recovered/Resolved]
  - Tremor [Unknown]
  - Constipation [Recovering/Resolving]
  - Pain in extremity [Unknown]
  - Asthenia [Unknown]
  - Drug dose omission [Recovered/Resolved]
  - Contusion [Not Recovered/Not Resolved]
  - Anxiety [Unknown]

NARRATIVE: CASE EVENT DATE: 201009
